FAERS Safety Report 6085700-2 (Version None)
Quarter: 2009Q1

REPORT INFORMATION
  Report Type: 
  Country: None (occurrence: None)
  Receive Date: 20090220
  Receipt Date: 20090213
  Transmission Date: 20090719
  Serious: Yes (Hospitalization)
  Sender: FDA-Public Use
  Company Number: ES-GENENTECH-277394

PATIENT
  Age: 75 Year
  Sex: Female

DRUGS (2)
  1. RAPTIVA [Suspect]
     Indication: PSORIASIS
     Dosage: 1 MG/KG, 1/WEEK
     Route: 058
     Dates: start: 20081001, end: 20090101
  2. METHOTREXATE [Suspect]
     Indication: PSORIASIS
     Dosage: 20 MG, 1/WEEK
     Route: 048
     Dates: start: 20090101, end: 20090101

REACTIONS (3)
  - ACCIDENTAL OVERDOSE [None]
  - BONE MARROW FAILURE [None]
  - TOXIC SKIN ERUPTION [None]
